FAERS Safety Report 23549443 (Version 1)
Quarter: 2024Q1

REPORT INFORMATION
  Report Type: Spontaneous
  Country: US (occurrence: None)
  Receive Date: 20240220
  Receipt Date: 20240220
  Transmission Date: 20240410
  Serious: Yes (Disabling, Other)
  Sender: FDA-Public Use
  Company Number: None

PATIENT
  Age: 45 Year
  Sex: Female
  Weight: 94.5 kg

DRUGS (3)
  1. CIPRO [Suspect]
     Active Substance: CIPROFLOXACIN HYDROCHLORIDE
     Indication: Intervertebral discitis
     Dosage: OTHER QUANTITY : 28 TABLET(S);?FREQUENCY : TWICE A DAY;?
     Route: 048
     Dates: start: 20231218, end: 20240101
  2. PERCOCET [Concomitant]
     Active Substance: ACETAMINOPHEN\OXYCODONE HYDROCHLORIDE
  3. neurotin [Concomitant]

REACTIONS (11)
  - Diarrhoea [None]
  - Arthralgia [None]
  - Muscular weakness [None]
  - Vomiting [None]
  - Tinnitus [None]
  - Insomnia [None]
  - Pain [None]
  - Confusional state [None]
  - Memory impairment [None]
  - Disturbance in attention [None]
  - Libido disorder [None]

NARRATIVE: CASE EVENT DATE: 20231218
